FAERS Safety Report 25792805 (Version 1)
Quarter: 2025Q3

REPORT INFORMATION
  Report Type: Spontaneous
  Country: EG (occurrence: EG)
  Receive Date: 20250911
  Receipt Date: 20250911
  Transmission Date: 20251020
  Serious: Yes (Hospitalization)
  Sender: BEXIMCO PHARMACEUTICALS
  Company Number: EG-BEXIMCO-2025BEX00050

PATIENT
  Age: 14 Year
  Sex: Male

DRUGS (2)
  1. BACLOFEN [Suspect]
     Active Substance: BACLOFEN
     Indication: Cerebral palsy
     Dosage: 50 ?G, 1X/DAY
     Route: 037
  2. BACLOFEN [Suspect]
     Active Substance: BACLOFEN
     Dosage: 6 ?G, 1X/DAY
     Route: 037

REACTIONS (2)
  - Neurological decompensation [Unknown]
  - Toxicity to various agents [Unknown]
